FAERS Safety Report 12175080 (Version 1)
Quarter: 2016Q1

REPORT INFORMATION
  Report Type: Spontaneous
  Country: US (occurrence: US)
  Receive Date: 20160314
  Receipt Date: 20160314
  Transmission Date: 20160526
  Serious: No
  Sender: FDA-Public Use
  Company Number: US-LEO PHARMA-240634

PATIENT
  Age: 62 Year
  Sex: Female

DRUGS (1)
  1. PICATO [Suspect]
     Active Substance: INGENOL MEBUTATE
     Indication: ACTINIC KERATOSIS
     Route: 061
     Dates: start: 20160307

REACTIONS (4)
  - Application site exfoliation [Not Recovered/Not Resolved]
  - Application site scab [Not Recovered/Not Resolved]
  - Application site erythema [Not Recovered/Not Resolved]
  - Application site vesicles [Recovering/Resolving]

NARRATIVE: CASE EVENT DATE: 20160307
